FAERS Safety Report 13539288 (Version 2)
Quarter: 2017Q2

REPORT INFORMATION
  Report Type: Spontaneous
  Country: US (occurrence: US)
  Receive Date: 20170512
  Receipt Date: 20170518
  Transmission Date: 20170830
  Serious: No
  Sender: FDA-Public Use
  Company Number: US-PFIZER INC-2017202492

PATIENT
  Sex: Female

DRUGS (2)
  1. HERCEPTIN [Suspect]
     Active Substance: TRASTUZUMAB
     Dosage: 440 MG, UNK
  2. WATER BACTERIOSTATIC [Suspect]
     Active Substance: WATER
     Dosage: UNK

REACTIONS (1)
  - Rash [Unknown]
